FAERS Safety Report 9045665 (Version 1)
Quarter: 2013Q1

REPORT INFORMATION
  Report Type: Report from Study
  Country: US (occurrence: US)
  Receive Date: 20130131
  Receipt Date: 20130131
  Transmission Date: 20140127
  Serious: No
  Sender: FDA-Public Use
  Company Number: US-ABBOTT-12P-163-0979480-00

PATIENT
  Age: 58 Year
  Sex: Male

DRUGS (9)
  1. HUMIRA [Suspect]
     Indication: CROHN^S DISEASE
     Dates: start: 20120816
  2. HUMIRA [Suspect]
  3. HUMIRA [Suspect]
     Dates: end: 201209
  4. HUMIRA [Suspect]
     Dosage: 160 MG LOADING DOSE
  5. HUMIRA [Suspect]
     Dates: start: 201210
  6. LIALDA [Concomitant]
     Indication: CROHN^S DISEASE
  7. LAMISIL [Concomitant]
     Indication: TINEA PEDIS
  8. PREDNISONE [Concomitant]
     Indication: PRODUCT USED FOR UNKNOWN INDICATION
     Dosage: WEANED OFF IT
  9. LAMISIL [Concomitant]
     Indication: TINEA PEDIS

REACTIONS (12)
  - Incorrect dose administered [Unknown]
  - Drug dispensing error [Unknown]
  - Crohn^s disease [Recovering/Resolving]
  - Device malfunction [Unknown]
  - Bowel movement irregularity [Unknown]
  - Insomnia [Not Recovered/Not Resolved]
  - Lethargy [Not Recovered/Not Resolved]
  - Asthenia [Not Recovered/Not Resolved]
  - Drug ineffective [Not Recovered/Not Resolved]
  - Incorrect dose administered [Not Recovered/Not Resolved]
  - Device malfunction [Not Recovered/Not Resolved]
  - Dysphonia [Not Recovered/Not Resolved]
